FAERS Safety Report 6291914-9 (Version None)
Quarter: 2009Q3

REPORT INFORMATION
  Report Type: 
  Country: None (occurrence: None)
  Receive Date: 20090723
  Receipt Date: 20090713
  Transmission Date: 20100115
  Serious: Yes (Other)
  Sender: FDA-Public Use
  Company Number: 09-007

PATIENT
  Sex: Male

DRUGS (2)
  1. JOHNSON GRASS 1:20 W/V 50% GLYCERINATED [Suspect]
     Indication: HYPERSENSITIVITY
     Dosage: SUBCUTANEOUS
     Route: 058
     Dates: start: 20090501
  2. JOHNSON GRASS 1:20 W/V 50% GLYCERINATED [Suspect]

REACTIONS (1)
  - INJECTION SITE ABSCESS STERILE [None]
